FAERS Safety Report 15948007 (Version 2)
Quarter: 2019Q3

REPORT INFORMATION
  Report Type: Spontaneous
  Country: FR (occurrence: FR)
  Receive Date: 20190212
  Receipt Date: 20190802
  Transmission Date: 20191004
  Serious: Yes (Hospitalization, Other)
  Sender: FDA-Public Use
  Company Number: FR-GLAXOSMITHKLINE-FR2019GSK024882

PATIENT
  Age: 45 Year
  Sex: Male

DRUGS (4)
  1. CODEINE PHOSPHATE + PARACETAMOL [Suspect]
     Active Substance: ACETAMINOPHEN\CODEINE PHOSPHATE
     Indication: TOXICITY TO VARIOUS AGENTS
     Dosage: 8 DF, UNK
     Route: 048
  2. BACLOFENE ZENTIVA [Suspect]
     Active Substance: BACLOFEN
     Indication: TOXICITY TO VARIOUS AGENTS
     Dosage: 50 DF, UNK
     Route: 048
  3. PARACETAMOL [Suspect]
     Active Substance: ACETAMINOPHEN
     Indication: TOXICITY TO VARIOUS AGENTS
     Dosage: 16 DF, UNK
     Route: 048
  4. NICORETTE [Suspect]
     Active Substance: NICOTINE
     Indication: TOXICITY TO VARIOUS AGENTS
     Dosage: 14 DF, UNK
     Route: 048

REACTIONS (6)
  - Somnolence [Recovered/Resolved]
  - Hepatocellular injury [Unknown]
  - Abdominal pain [Unknown]
  - Tremor [Unknown]
  - Intentional overdose [Unknown]
  - Miosis [Unknown]

NARRATIVE: CASE EVENT DATE: 20181110
